FAERS Safety Report 5124404-7 (Version None)
Quarter: 2006Q4

REPORT INFORMATION
  Report Type: 
  Country: None (occurrence: None)
  Receive Date: 20061010
  Receipt Date: 20060929
  Transmission Date: 20070319
  Serious: Yes (Life-Threatening, Hospitalization, Other)
  Sender: FDA-Public Use
  Company Number: US-MERCK-0610USA00320

PATIENT
  Age: 61 Year
  Sex: Female

DRUGS (4)
  1. CANCIDAS [Suspect]
     Indication: FUNGAL INFECTION
     Route: 042
     Dates: start: 20060901, end: 20060928
  2. [THERAPY UNSPECIFIED] [Concomitant]
     Route: 065
  3. MOXIFLOXACIN HYDROCHLORIDE [Suspect]
     Route: 065
  4. VITAMIN D (UNSPECIFIED) [Concomitant]
     Route: 065

REACTIONS (6)
  - ARRHYTHMIA [None]
  - BLOOD CALCIUM DECREASED [None]
  - ELECTROCARDIOGRAM QT PROLONGED [None]
  - HYPOKALAEMIA [None]
  - HYPOMAGNESAEMIA [None]
  - TORSADE DE POINTES [None]
